FAERS Safety Report 15807073 (Version 1)
Quarter: 2019Q1

REPORT INFORMATION
  Report Type: Spontaneous
  Country: US (occurrence: US)
  Receive Date: 20190110
  Receipt Date: 20190110
  Transmission Date: 20190417
  Serious: Yes (Death)
  Sender: FDA-Public Use
  Company Number: US-PFIZER INC-2019009156

PATIENT
  Age: 40 Year
  Sex: Female

DRUGS (1)
  1. MAGNESIUM SULFATE. [Suspect]
     Active Substance: MAGNESIUM SULFATE
     Dosage: UNK
     Route: 048

REACTIONS (4)
  - Cardiac arrest [Fatal]
  - Respiratory arrest [Fatal]
  - Death [Fatal]
  - Accidental exposure to product [Fatal]

NARRATIVE: CASE EVENT DATE: 2017
